FAERS Safety Report 5004898-8 (Version None)
Quarter: 2006Q1

REPORT INFORMATION
  Report Type: 
  Country: None (occurrence: None)
  Receive Date: 20060321
  Receipt Date: 20060116
  Transmission Date: 20060701
  Serious: No
  Sender: FDA-Public Use
  Company Number: 2006US000156

PATIENT
  Age: 66 Year
  Sex: Female

DRUGS (4)
  1. VESICARE [Suspect]
     Indication: HYPERTONIC BLADDER
     Dosage: 5 MG, BID, ORAL
     Route: 048
     Dates: start: 20050801
  2. FLOVENT [Concomitant]
  3. SEREVENT [Concomitant]
  4. ATROVENT [Concomitant]

REACTIONS (4)
  - CONSTIPATION [None]
  - DRY MOUTH [None]
  - OEDEMA PERIPHERAL [None]
  - URINARY INCONTINENCE [None]
